FAERS Safety Report 20789206 (Version 2)
Quarter: 2023Q2

REPORT INFORMATION
  Report Type: Spontaneous
  Country: US (occurrence: US)
  Receive Date: 20220505
  Receipt Date: 20230530
  Transmission Date: 20230721
  Serious: No
  Sender: FDA-Public Use
  Company Number: US-UCBSA-2021010471

PATIENT
  Sex: Male

DRUGS (1)
  1. CIMZIA [Suspect]
     Active Substance: CERTOLIZUMAB PEGOL
     Indication: Product used for unknown indication
     Dosage: 150 MILLIGRAM, EV 2 WEEKS(QOW)
     Route: 058
     Dates: start: 202009

REACTIONS (2)
  - Product dose omission issue [Unknown]
  - Off label use [Unknown]
